FAERS Safety Report 26081340 (Version 1)
Quarter: 2025Q4

REPORT INFORMATION
  Report Type: Spontaneous
  Country: MA (occurrence: MA)
  Receive Date: 20251124
  Receipt Date: 20251124
  Transmission Date: 20260118
  Serious: Yes (Hospitalization, Other)
  Sender: AMGEN
  Company Number: MA-AMGEN-MARSP2025230064

PATIENT

DRUGS (1)
  1. ADALIMUMAB [Suspect]
     Active Substance: ADALIMUMAB
     Indication: Colitis
     Dosage: UNK
     Route: 065

REACTIONS (5)
  - Colitis [Unknown]
  - Acute abdomen [Unknown]
  - Electrolyte imbalance [Unknown]
  - Erythema [Unknown]
  - Intestinal congestion [Unknown]
